FAERS Safety Report 17155246 (Version 1)
Quarter: 2019Q4

REPORT INFORMATION
  Report Type: Report from Study
  Country: None (occurrence: US)
  Receive Date: 20191215
  Receipt Date: 20191215
  Transmission Date: 20200122
  Serious: Yes (Other)
  Sender: FDA-Public Use
  Company Number: US-ABBVIE-19P-163-3184401-00

PATIENT
  Age: 68 Year
  Sex: Male

DRUGS (5)
  1. TAMSULOSIN [Concomitant]
     Active Substance: TAMSULOSIN
     Indication: PRODUCT USED FOR UNKNOWN INDICATION
  2. IMBRUVICA [Suspect]
     Active Substance: IBRUTINIB
     Indication: CHRONIC LYMPHOCYTIC LEUKAEMIA
     Route: 048
     Dates: start: 20191122
  3. ALLOPURINOL. [Concomitant]
     Active Substance: ALLOPURINOL
     Indication: PRODUCT USED FOR UNKNOWN INDICATION
  4. JENTADUETO [Concomitant]
     Active Substance: LINAGLIPTIN\METFORMIN HYDROCHLORIDE
     Indication: PRODUCT USED FOR UNKNOWN INDICATION
  5. PROCHLORPERAZINE MALEATE. [Concomitant]
     Active Substance: PROCHLORPERAZINE MALEATE
     Indication: PRODUCT USED FOR UNKNOWN INDICATION

REACTIONS (6)
  - Arthralgia [Recovered/Resolved]
  - Intentional self-injury [Unknown]
  - Impaired healing [Unknown]
  - Pain in extremity [Recovered/Resolved]
  - Vomiting [Unknown]
  - Nausea [Unknown]

NARRATIVE: CASE EVENT DATE: 2019
